FAERS Safety Report 16638602 (Version 1)
Quarter: 2019Q3

REPORT INFORMATION
  Report Type: Spontaneous
  Country: TH (occurrence: TH)
  Receive Date: 20190726
  Receipt Date: 20190726
  Transmission Date: 20191004
  Serious: Yes (Hospitalization, Other)
  Sender: FDA-Public Use
  Company Number: TH-TAKEDA-2019TUS044974

PATIENT
  Age: 66 Year
  Sex: Female

DRUGS (3)
  1. FEBURIC [Suspect]
     Active Substance: FEBUXOSTAT
     Indication: GOUT
     Dosage: 40 MILLIGRAM, QD
     Route: 065
     Dates: start: 201703, end: 201809
  2. FEBURIC [Suspect]
     Active Substance: FEBUXOSTAT
     Dosage: 40 MILLIGRAM, QOD
     Route: 048
     Dates: start: 201810, end: 201906
  3. FEBURIC [Suspect]
     Active Substance: FEBUXOSTAT
     Dosage: UNK UNK, QD
     Route: 048
     Dates: start: 201906

REACTIONS (3)
  - Cardiac failure acute [Unknown]
  - Acute kidney injury [Unknown]
  - Cholecystitis [Unknown]

NARRATIVE: CASE EVENT DATE: 201809
